FAERS Safety Report 10449513 (Version 1)
Quarter: 2014Q3

REPORT INFORMATION
  Report Type: Spontaneous
  Country: GB (occurrence: GB)
  Receive Date: 20140912
  Receipt Date: 20140912
  Transmission Date: 20150326
  Serious: Yes (Death, Hospitalization, Other)
  Sender: FDA-Public Use
  Company Number: GB-ROCHE-1458773

PATIENT
  Age: 76 Year
  Sex: Female
  Weight: 57 kg

DRUGS (6)
  1. LENOGRASTIM [Concomitant]
     Active Substance: LENOGRASTIM
  2. CAPECITABINE [Concomitant]
     Active Substance: CAPECITABINE
  3. CLOZAPINE. [Concomitant]
     Active Substance: CLOZAPINE
     Dosage: AT NIGHT
     Route: 065
  4. LANSOPRAZOLE. [Concomitant]
     Active Substance: LANSOPRAZOLE
  5. HERCEPTIN [Suspect]
     Active Substance: TRASTUZUMAB
     Indication: PRODUCT USED FOR UNKNOWN INDICATION
     Route: 042
  6. CODEIN [Concomitant]
     Active Substance: CODEINE
     Dosage: SINGLE DOSE ONLY
     Route: 065

REACTIONS (10)
  - Metastases to bone [Unknown]
  - Malaise [Unknown]
  - Asthenia [Unknown]
  - Chromaturia [Unknown]
  - Diarrhoea [Unknown]
  - Fluid retention [Unknown]
  - Metastases to spine [Unknown]
  - Renal failure acute [Fatal]
  - Jaundice [Unknown]
  - Metastases to liver [Unknown]

NARRATIVE: CASE EVENT DATE: 201404
